FAERS Safety Report 13510315 (Version 2)
Quarter: 2017Q2

REPORT INFORMATION
  Report Type: Spontaneous
  Country: CO (occurrence: CO)
  Receive Date: 20170503
  Receipt Date: 20170522
  Transmission Date: 20170830
  Serious: Yes (Hospitalization, Disabling)
  Sender: FDA-Public Use
  Company Number: CO-HIKMA PHARMACEUTICALS CO. LTD-2017CO005291

PATIENT

DRUGS (8)
  1. REMSIMA [Suspect]
     Active Substance: INFLIXIMAB
     Indication: COLITIS ULCERATIVE
     Dosage: 600 MG, BIMONTHLY
     Route: 042
     Dates: start: 20151222, end: 20151222
  2. REMSIMA [Suspect]
     Active Substance: INFLIXIMAB
     Dosage: 600 MG, BIMONTHLY
     Route: 042
     Dates: start: 20161222, end: 20161222
  3. METOPROLOL. [Concomitant]
     Active Substance: METOPROLOL
     Dosage: 50 MG, UNK
     Dates: start: 20170131
  4. PREDNISOLONA                       /00016201/ [Concomitant]
     Dosage: 5 MG, UNK
     Dates: start: 20170116
  5. FOLIC ACID. [Concomitant]
     Active Substance: FOLIC ACID
     Dosage: 1 MG, UNK
     Dates: start: 20170131
  6. ENALAPRIL [Concomitant]
     Active Substance: ENALAPRIL
     Dosage: 20 MG, UNK
     Dates: start: 20170131
  7. REMSIMA [Suspect]
     Active Substance: INFLIXIMAB
     Dosage: 600 MG, BIMONTHLY
     Route: 042
     Dates: start: 20170123, end: 20170123
  8. AMLODIPINO                         /00972401/ [Concomitant]
     Active Substance: AMLODIPINE BESYLATE
     Dosage: 5 MG, UNK
     Dates: start: 20170131

REACTIONS (7)
  - Colitis ulcerative [Unknown]
  - Treatment failure [Unknown]
  - Overdose [Unknown]
  - Asthenia [Unknown]
  - Dehydration [Unknown]
  - Myalgia [Unknown]
  - Discomfort [Unknown]

NARRATIVE: CASE EVENT DATE: 20151222
